FAERS Safety Report 7819645-1 (Version None)
Quarter: 2011Q4

REPORT INFORMATION
  Report Type: 
  Country: None (occurrence: None)
  Receive Date: 20111018
  Receipt Date: 20111007
  Transmission Date: 20120403
  Serious: Yes (Life-Threatening, Disabling, Other)
  Sender: FDA-Public Use
  Company Number: JP-SANOFI-AVENTIS-2011SA052251

PATIENT
  Age: 79 Year
  Sex: Male
  Weight: 51 kg

DRUGS (12)
  1. KAYEXALATE [Suspect]
     Dosage: FORM: DRY SYRUP; STRENGTH: 76%
     Route: 048
     Dates: start: 20110722
  2. PAXIL [Concomitant]
     Route: 048
  3. ACETANOL [Concomitant]
     Route: 048
  4. MAGNESIUM SULFATE [Concomitant]
     Route: 048
  5. DAIKENTYUTO [Concomitant]
     Dosage: ZANTHOXYLUM FRIUT, GINSENG, PROCESSED GINGER
     Route: 048
  6. FERROUS SULFATE TAB [Concomitant]
     Route: 048
  7. CALCIUM POLYSTYRENE SULFONATE [Concomitant]
     Indication: HYPERKALAEMIA
     Dosage: FORM: JELLY
     Route: 048
  8. ASPIRIN [Concomitant]
     Route: 048
  9. CAPTOPRIL [Concomitant]
     Route: 048
  10. DOGMATYL [Concomitant]
     Route: 048
  11. ADALAT [Concomitant]
     Route: 048
  12. JUZENTAIHOTO [Concomitant]
     Route: 048

REACTIONS (4)
  - MYOPATHY [None]
  - BRADYCARDIA [None]
  - CONSTIPATION [None]
  - HYPOKALAEMIA [None]
